FAERS Safety Report 5413635-4 (Version None)
Quarter: 2007Q3

REPORT INFORMATION
  Report Type: 
  Country: None (occurrence: None)
  Receive Date: 20070814
  Receipt Date: 20070531
  Transmission Date: 20080115
  Serious: No
  Sender: FDA-Public Use
  Company Number: US-BRISTOL-MYERS SQUIBB COMPANY-13799341

PATIENT
  Age: 45 Year
  Sex: Female

DRUGS (6)
  1. GLUCOVANCE [Suspect]
     Indication: DIABETES MELLITUS
  2. GLUCOPHAGE [Suspect]
  3. JANUVIA [Concomitant]
     Route: 048
  4. AMARYL [Concomitant]
  5. VYTORIN [Concomitant]
  6. ACTOS [Concomitant]

REACTIONS (2)
  - DIARRHOEA [None]
  - HYPOGLYCAEMIA [None]
